FAERS Safety Report 16948275 (Version 1)
Quarter: 2019Q4

REPORT INFORMATION
  Report Type: Spontaneous
  Country: US (occurrence: US)
  Receive Date: 20191022
  Receipt Date: 20191022
  Transmission Date: 20200122
  Serious: No
  Sender: FDA-Public Use
  Company Number: US-ROCHE-2382811

PATIENT
  Sex: Male

DRUGS (8)
  1. SOTALOL HCL [Concomitant]
     Active Substance: SOTALOL
  2. ASPIRIN 81 [Concomitant]
     Active Substance: ASPIRIN
  3. ESBRIET [Suspect]
     Active Substance: PIRFENIDONE
     Dosage: FOR A WEEK
     Route: 048
  4. ESBRIET [Suspect]
     Active Substance: PIRFENIDONE
     Dosage: WITH MEALS
     Route: 048
  5. ESOMEPRAZOLE. [Concomitant]
     Active Substance: ESOMEPRAZOLE MAGNESIUM
  6. AMBIEN [Concomitant]
     Active Substance: ZOLPIDEM TARTRATE
  7. ELIQUIS [Concomitant]
     Active Substance: APIXABAN
  8. ESBRIET [Suspect]
     Active Substance: PIRFENIDONE
     Indication: IDIOPATHIC PULMONARY FIBROSIS
     Dosage: FOR A WEEK
     Route: 048
     Dates: start: 20190430

REACTIONS (1)
  - Headache [Unknown]
